FAERS Safety Report 19802247 (Version 1)
Quarter: 2021Q3

REPORT INFORMATION
  Report Type: Spontaneous
  Country: US (occurrence: US)
  Receive Date: 20210907
  Receipt Date: 20210907
  Transmission Date: 20211014
  Serious: Yes (Death)
  Sender: FDA-Public Use
  Company Number: None

PATIENT
  Age: 55 Year
  Sex: Female
  Weight: 45.32 kg

DRUGS (8)
  1. ONDANSETRON ODT [Suspect]
     Active Substance: ONDANSETRON
     Indication: CHOLANGIOCARCINOMA
     Dosage: ?          OTHER FREQUENCY:Q8H PRN;?
     Route: 048
     Dates: start: 20210702, end: 20210905
  2. ROZLYTREK [Suspect]
     Active Substance: ENTRECTINIB
     Indication: CHOLANGIOCARCINOMA
     Route: 048
     Dates: start: 20210702, end: 20210905
  3. DOCUSATE [Concomitant]
     Active Substance: DOCUSATE
  4. LORAZEPAM. [Concomitant]
     Active Substance: LORAZEPAM
  5. OXYCODONE [Concomitant]
     Active Substance: OXYCODONE
  6. NALOXONE [Concomitant]
     Active Substance: NALOXONE
  7. SERTRALINE [Concomitant]
     Active Substance: SERTRALINE HYDROCHLORIDE
  8. MEDICAL MARIJUANA [Concomitant]
     Active Substance: CANNABIS SATIVA SUBSP. INDICA TOP

REACTIONS (1)
  - Death [None]

NARRATIVE: CASE EVENT DATE: 20210905
